FAERS Safety Report 5091719-0 (Version None)
Quarter: 2006Q3

REPORT INFORMATION
  Report Type: 
  Country: None (occurrence: None)
  Receive Date: 20060824
  Receipt Date: 20060810
  Transmission Date: 20061208
  Serious: Yes (Hospitalization)
  Sender: FDA-Public Use
  Company Number: 227487

PATIENT
  Age: 75 Year
  Sex: Male

DRUGS (9)
  1. AVASTIN [Suspect]
     Indication: COLORECTAL CANCER
     Dosage: 750 MG, QD, INTRAVENOUS
     Route: 042
     Dates: start: 20060411
  2. CAPECITABINE (CAPECITABINE) [Suspect]
     Indication: COLORECTAL CANCER
     Dosage: 2000 MG, QD, ORAL
     Route: 048
     Dates: start: 20060411
  3. OXALIPLATIN [Suspect]
     Indication: COLORECTAL CANCER
     Dosage: 206 MG, QD, INTRAVENOUS
     Route: 042
     Dates: start: 20060411
  4. ERBITUX [Suspect]
     Indication: COLORECTAL CANCER
     Dates: start: 20060411
  5. OXAZEPAM [Concomitant]
  6. METOCLOPRAMIDE (METOCLOPRAMIDE HYDROCHLORIDE) [Concomitant]
  7. ESOMEPRAZOLE (ESOMEPRAZOLE MAGNESIUM) [Concomitant]
  8. ACETAMINOPHEN [Concomitant]
  9. CALCIUM GLUCONATE [Concomitant]

REACTIONS (8)
  - BLOOD ALBUMIN DECREASED [None]
  - BLOOD BILIRUBIN INCREASED [None]
  - BLOOD CALCIUM DECREASED [None]
  - BLOOD CREATININE DECREASED [None]
  - DUODENAL PERFORATION [None]
  - ENTEROCOCCAL INFECTION [None]
  - PROTEUS INFECTION [None]
  - SEPSIS [None]
